FAERS Safety Report 7835723-5 (Version None)
Quarter: 2011Q4

REPORT INFORMATION
  Report Type: 
  Country: None (occurrence: None)
  Receive Date: 20111020
  Receipt Date: 20111007
  Transmission Date: 20120403
  Serious: Yes (Disabling)
  Sender: FDA-Public Use
  Company Number: JP-2011-11401

PATIENT
  Age: 77 Year
  Sex: Male
  Weight: 56 kg

DRUGS (8)
  1. MIDAZOLAM HCL [Concomitant]
  2. TRICHLORMETHIAZIDE [Concomitant]
  3. DORIBAX [Concomitant]
  4. SAMSCA [Suspect]
     Indication: POLYURIA
     Dosage: 15 MG MILLIGRAM(S), QD, ORAL
     Route: 048
     Dates: start: 20110810, end: 20110816
  5. ASPIRIN [Concomitant]
  6. LASIX [Concomitant]
  7. PLAVIX [Concomitant]
  8. CONCENTRATED RED CELLS (CONCENTRATED HUMAN RED BLOOD CELLS) [Concomitant]

REACTIONS (3)
  - PULMONARY ALVEOLAR HAEMORRHAGE [None]
  - BLOOD UREA INCREASED [None]
  - INTERSTITIAL LUNG DISEASE [None]
